FAERS Safety Report 4533633-2 (Version None)
Quarter: 2004Q4

REPORT INFORMATION
  Report Type: 
  Country: None (occurrence: None)
  Receive Date: 20041221
  Receipt Date: 20041208
  Transmission Date: 20050328
  Serious: Yes (Hospitalization, Other)
  Sender: FDA-Public Use
  Company Number: US-GLAXOSMITHKLINE-A0536428A

PATIENT
  Age: 66 Year
  Sex: Female
  Weight: 86.4 kg

DRUGS (6)
  1. NICODERM CQ [Suspect]
     Route: 062
     Dates: start: 19990101, end: 20041101
  2. COMMIT NICOTINE POLACRILEX LOZENGE, 2MG [Concomitant]
     Route: 002
     Dates: start: 20041101
  3. GLYBURIDE [Concomitant]
     Route: 048
  4. THEOPHYLLINE [Concomitant]
     Indication: ASTHMA
     Route: 048
  5. ZESTRIL [Concomitant]
     Indication: HYPERTENSION
     Route: 048
  6. ACCUPRIL [Concomitant]
     Indication: HYPERTENSION
     Route: 048

REACTIONS (7)
  - ABSCESS [None]
  - BUTTOCK PAIN [None]
  - CONTUSION [None]
  - FALL [None]
  - FISTULA [None]
  - NAUSEA [None]
  - PYREXIA [None]
